FAERS Safety Report 21324202 (Version 1)
Quarter: 2022Q3

REPORT INFORMATION
  Report Type: Spontaneous
  Country: US (occurrence: None)
  Receive Date: 20220911
  Receipt Date: 20220911
  Transmission Date: 20221027
  Serious: Yes (Other)
  Sender: FDA-Public Use
  Company Number: None

PATIENT
  Age: 31 Year
  Sex: Male
  Weight: 54.45 kg

DRUGS (4)
  1. RECTIV [Suspect]
     Active Substance: NITROGLYCERIN
     Indication: Anal fissure
     Dosage: OTHER QUANTITY : 1 INCH;?FREQUENCY : TWICE A DAY;?
     Route: 054
     Dates: start: 20220910, end: 20220911
  2. VALIUM [Concomitant]
  3. BACLOFEN [Concomitant]
     Active Substance: BACLOFEN
  4. SLEEP3 NATURES BOUNTY KRATOM [Concomitant]

REACTIONS (6)
  - Parosmia [None]
  - Taste disorder [None]
  - Insomnia [None]
  - Back pain [None]
  - Pain [None]
  - Aggression [None]

NARRATIVE: CASE EVENT DATE: 20220911
